FAERS Safety Report 5453948-3 (Version None)
Quarter: 2007Q3

REPORT INFORMATION
  Report Type: 
  Country: None (occurrence: None)
  Receive Date: 20070917
  Receipt Date: 20070309
  Transmission Date: 20080115
  Serious: No
  Sender: FDA-Public Use
  Company Number: US-ASTRAZENECA-2004UW23651

PATIENT
  Age: 50 Year
  Sex: Male
  Weight: 149.7 kg

DRUGS (24)
  1. SEROQUEL [Suspect]
     Indication: AFFECTIVE DISORDER
     Route: 048
  2. SEROQUEL [Suspect]
     Indication: SLEEP DISORDER
     Route: 048
  3. SEROQUEL [Suspect]
     Indication: ANXIETY
     Route: 048
  4. SEROQUEL [Suspect]
     Route: 048
  5. SEROQUEL [Suspect]
     Route: 048
  6. SEROQUEL [Suspect]
     Route: 048
  7. SEROQUEL [Suspect]
     Route: 048
  8. SEROQUEL [Suspect]
     Route: 048
  9. SEROQUEL [Suspect]
     Route: 048
  10. SEROQUEL [Suspect]
     Route: 048
  11. SEROQUEL [Suspect]
     Route: 048
  12. SEROQUEL [Suspect]
     Route: 048
  13. SEROQUEL [Suspect]
     Route: 048
  14. SEROQUEL [Suspect]
     Route: 048
  15. SEROQUEL [Suspect]
     Route: 048
  16. LIPITOR [Concomitant]
  17. ACCUPRIL [Concomitant]
  18. SYNTHROID [Concomitant]
  19. ACTOS [Concomitant]
  20. INSULIN [Concomitant]
     Dosage: 70/30
  21. ATIVAN [Concomitant]
     Route: 048
  22. PROZAC [Concomitant]
  23. XANAX [Concomitant]
  24. PAXIL [Concomitant]

REACTIONS (9)
  - ABNORMAL DREAMS [None]
  - FATIGUE [None]
  - HANGOVER [None]
  - HEADACHE [None]
  - ILL-DEFINED DISORDER [None]
  - INSOMNIA [None]
  - RESTLESSNESS [None]
  - SLEEP DISORDER [None]
  - SOMNOLENCE [None]
